FAERS Safety Report 25089790 (Version 1)
Quarter: 2025Q1

REPORT INFORMATION
  Report Type: Spontaneous
  Country: KR (occurrence: KR)
  Receive Date: 20250318
  Receipt Date: 20250318
  Transmission Date: 20250409
  Serious: Yes (Other)
  Sender: MERCK SHARP & DOHME LLC
  Company Number: KR-009507513-2263529

PATIENT
  Sex: Male
  Weight: 64 kg

DRUGS (1)
  1. INVANZ [Suspect]
     Active Substance: ERTAPENEM SODIUM
     Dosage: STRENGTH: 1G
     Route: 065
     Dates: start: 20240220, end: 20240220

REACTIONS (1)
  - Shock [Unknown]

NARRATIVE: CASE EVENT DATE: 20240220
